FAERS Safety Report 6193268-5 (Version None)
Quarter: 2009Q2

REPORT INFORMATION
  Report Type: 
  Country: None (occurrence: None)
  Receive Date: 20090518
  Receipt Date: 20090505
  Transmission Date: 20091009
  Serious: Yes (Other)
  Sender: FDA-Public Use
  Company Number: B0572766A

PATIENT
  Sex: Male

DRUGS (3)
  1. ONDANSETRON HCL [Suspect]
     Dosage: 8MG CYCLIC
     Route: 042
     Dates: start: 20090107, end: 20090305
  2. AZINC [Suspect]
     Dosage: 1UNIT PER DAY
     Route: 048
     Dates: end: 20090305
  3. GEMZAR [Concomitant]
     Dosage: 1000MGM2 CYCLIC
     Route: 042
     Dates: start: 20090107

REACTIONS (1)
  - CYTOLYTIC HEPATITIS [None]
